FAERS Safety Report 5610745-3 (Version None)
Quarter: 2008Q1

REPORT INFORMATION
  Report Type: 
  Country: None (occurrence: None)
  Receive Date: 20080201
  Receipt Date: 20080125
  Transmission Date: 20080703
  Serious: Yes (Other)
  Sender: FDA-Public Use
  Company Number: PHHY2008JP00749

PATIENT
  Age: 70 Year
  Sex: Female

DRUGS (3)
  1. ZOLEDRONIC ACID [Suspect]
     Indication: METASTASES TO BONE
     Dosage: EVERY 4 WEEK
     Route: 042
     Dates: start: 20060701
  2. PAMIDRONATE DISODIUM [Suspect]
     Indication: METASTASES TO BONE
     Route: 042
     Dates: start: 20040601
  3. ANASTROZOLE [Concomitant]
     Indication: METASTASES TO BONE

REACTIONS (4)
  - JOINT IRRIGATION [None]
  - OSTEONECROSIS [None]
  - PAIN IN JAW [None]
  - X-RAY ABNORMAL [None]
